FAERS Safety Report 6664789-3 (Version None)
Quarter: 2010Q1

REPORT INFORMATION
  Report Type: 
  Country: None (occurrence: None)
  Receive Date: 20100330
  Receipt Date: 20100312
  Transmission Date: 20100710
  Serious: Yes (Death, Life-Threatening, Hospitalization)
  Sender: FDA-Public Use
  Company Number: LEO-2010-00212

PATIENT
  Age: 61 Year
  Sex: Female
  Weight: 64 kg

DRUGS (4)
  1. INNOHEP [Suspect]
     Indication: VENA CAVA THROMBOSIS
     Dosage: 12000 IU, SUBCUTANEOUS
     Route: 058
     Dates: start: 20091218, end: 20100121
  2. SUNITINIB MALATE [Suspect]
     Indication: RENAL CELL CARCINOMA
     Dosage: 50 MG
     Dates: start: 20091228, end: 20100121
  3. TRANDOLAPRIL [Concomitant]
  4. ACTOS [Concomitant]

REACTIONS (5)
  - MATERNAL DRUGS AFFECTING FOETUS [None]
  - METABOLIC DISORDER [None]
  - MITOCHONDRIAL MYOPATHY [None]
  - NEONATAL RESPIRATORY DISTRESS SYNDROME [None]
  - SUDDEN INFANT DEATH SYNDROME [None]
